FAERS Safety Report 6391404-9 (Version None)
Quarter: 2009Q4

REPORT INFORMATION
  Report Type: 
  Country: None (occurrence: None)
  Receive Date: 20091007
  Receipt Date: 20081231
  Transmission Date: 20100525
  Serious: Yes (Life-Threatening)
  Sender: FDA-Public Use
  Company Number: PHEH2008US11635

PATIENT

DRUGS (1)
  1. DIOVAN HCT [Suspect]
     Dosage: 320/25 MG, UNK

REACTIONS (6)
  - ABNORMAL DREAMS [None]
  - BACK PAIN [None]
  - FEELING ABNORMAL [None]
  - HYPOAESTHESIA [None]
  - INSOMNIA [None]
  - PERIPHERAL COLDNESS [None]
